FAERS Safety Report 20329782 (Version 4)
Quarter: 2023Q1

REPORT INFORMATION
  Report Type: Other
  Country: US (occurrence: None)
  Receive Date: 20220112
  Receipt Date: 20230116
  Transmission Date: 20230418
  Serious: Yes (Hospitalization, Other)
  Sender: FDA-Public Use
  Company Number: US-ROCHE-2997400

PATIENT
  Age: 68 Year
  Sex: Female

DRUGS (5)
  1. KADCYLA [Suspect]
     Active Substance: ADO-TRASTUZUMAB EMTANSINE
     Indication: Breast cancer metastatic
     Dosage: NO
     Route: 042
     Dates: start: 20211202, end: 20211202
  2. HERCEPTIN [Suspect]
     Active Substance: TRASTUZUMAB
     Indication: Breast cancer metastatic
     Dosage: NO
     Route: 065
     Dates: start: 20110629, end: 201207
  3. HERCEPTIN [Suspect]
     Active Substance: TRASTUZUMAB
     Indication: Inflammatory carcinoma of the breast
     Route: 065
     Dates: start: 20191120, end: 20200721
  4. BIOTIN [Concomitant]
     Active Substance: BIOTIN
     Indication: Pain
     Dosage: YES
     Dates: start: 2014
  5. KISQALI [Concomitant]
     Active Substance: RIBOCICLIB
     Indication: Breast cancer metastatic
     Dosage: 3 WEEKS ON AND 1 WEEK OFF
     Route: 048

REACTIONS (16)
  - Hypersensitivity [Not Recovered/Not Resolved]
  - Chills [Not Recovered/Not Resolved]
  - Decreased appetite [Not Recovered/Not Resolved]
  - Weight decreased [Unknown]
  - Bone cancer metastatic [Unknown]
  - Breast cancer metastatic [Unknown]
  - Peripheral swelling [Unknown]
  - Dyspnoea [Unknown]
  - Neutropenia [Unknown]
  - Therapy interrupted [Unknown]
  - Mastectomy [Unknown]
  - Dysgraphia [Not Recovered/Not Resolved]
  - Inflammation [Unknown]
  - Thermal burn [Unknown]
  - Skin exfoliation [Unknown]
  - Speech disorder [Not Recovered/Not Resolved]

NARRATIVE: CASE EVENT DATE: 20211001
